FAERS Safety Report 9091849 (Version 1)
Quarter: 2013Q1

REPORT INFORMATION
  Report Type: Other
  Country: IS (occurrence: IS)
  Receive Date: 20130131
  Receipt Date: 20130131
  Transmission Date: 20140127
  Serious: Yes (Disabling)
  Sender: FDA-Public Use
  Company Number: IS-WATSON-2013-01098

PATIENT
  Sex: Male

DRUGS (2)
  1. SIMVASTATIN (UNKNOWN) [Suspect]
     Indication: BASAL GANGLIA STROKE
     Dosage: UNK, UNKNOWN
     Route: 065
     Dates: start: 20090728, end: 20110910
  2. SOTALOL [Concomitant]
     Indication: PRODUCT USED FOR UNKNOWN INDICATION
     Dosage: UNK, UNKNOWN
     Route: 065
     Dates: start: 20040701

REACTIONS (3)
  - Muscle spasms [Unknown]
  - Asthenia [Unknown]
  - Pain in extremity [Unknown]
